FAERS Safety Report 6241071-X (Version None)
Quarter: 2009Q2

REPORT INFORMATION
  Report Type: 
  Country: None (occurrence: None)
  Receive Date: 20090619
  Receipt Date: 20090619
  Transmission Date: 20091009
  Serious: Yes (Hospitalization)
  Sender: FDA-Public Use
  Company Number: None

PATIENT
  Sex: Male
  Weight: 51.7 kg

DRUGS (2)
  1. CAMPTOSAR [Suspect]
     Dosage: 680 MG
  2. VINCRISTINE SULFATE [Suspect]
     Dosage: 10 MG

REACTIONS (21)
  - BLADDER IRRITATION [None]
  - BONE MARROW FAILURE [None]
  - CONSTIPATION [None]
  - DERMATITIS [None]
  - DYSURIA [None]
  - ENTERITIS [None]
  - ERYTHEMA [None]
  - HYPOPHAGIA [None]
  - NAUSEA [None]
  - NEUTROPENIA [None]
  - PAIN [None]
  - PENILE PAIN [None]
  - PENILE ULCERATION [None]
  - PYREXIA [None]
  - RADIATION INJURY [None]
  - SKIN DISORDER [None]
  - SKIN EXFOLIATION [None]
  - SKIN INJURY [None]
  - URETHRAL HAEMORRHAGE [None]
  - URINARY RETENTION [None]
  - WOUND [None]
